FAERS Safety Report 20777643 (Version 1)
Quarter: 2022Q2

REPORT INFORMATION
  Report Type: Spontaneous
  Country: RU (occurrence: None)
  Receive Date: 20220503
  Receipt Date: 20220503
  Transmission Date: 20220720
  Serious: Yes (Other)
  Sender: FDA-Public Use
  Company Number: RU-ROCHE-3087107

PATIENT
  Age: 40 Year
  Sex: Female

DRUGS (4)
  1. TRASTUZUMAB [Suspect]
     Active Substance: TRASTUZUMAB
     Indication: Breast cancer metastatic
     Dosage: TRASTUZUMAB 6 MG/KG (8 MG/KG LOADING DOSE) IV ON DAY 1, 6 CYCLES OF TRASTUZUMAB + PERTUZUMAB.
     Route: 041
     Dates: start: 202004, end: 202010
  2. PERTUZUMAB [Suspect]
     Active Substance: PERTUZUMAB
     Indication: Breast cancer metastatic
     Dosage: PERTUZUMAB 420 MG (840 MG LOADING DOSE) IV ON DAY 1
     Route: 042
     Dates: start: 202004, end: 202010
  3. ADO-TRASTUZUMAB EMTANSINE [Suspect]
     Active Substance: ADO-TRASTUZUMAB EMTANSINE
     Indication: Breast cancer metastatic
     Route: 042
     Dates: start: 202103
  4. DOCETAXEL [Suspect]
     Active Substance: DOCETAXEL
     Indication: Breast cancer metastatic
     Dosage: ON DAY ONE
     Route: 042

REACTIONS (3)
  - Metastases to central nervous system [Unknown]
  - Blindness transient [Unknown]
  - Metastases to liver [Unknown]

NARRATIVE: CASE EVENT DATE: 20210201
